FAERS Safety Report 12438080 (Version 1)
Quarter: 2016Q2

REPORT INFORMATION
  Report Type: Spontaneous
  Country: US (occurrence: None)
  Receive Date: 20160606
  Receipt Date: 20160606
  Transmission Date: 20160815
  Serious: No
  Sender: FDA-Public Use
  Company Number: None

PATIENT
  Sex: Female

DRUGS (1)
  1. TRETTEN [Suspect]
     Active Substance: FACTOR XIII CONCENTRATE (HUMAN)
     Indication: CONGENITAL COAGULOPATHY
     Dosage: 2667 EVERY MONTH IV
     Route: 042
     Dates: start: 20141016

REACTIONS (1)
  - Paraesthesia [None]
